FAERS Safety Report 9702310 (Version 1)
Quarter: 2013Q4

REPORT INFORMATION
  Report Type: Spontaneous
  Country: US (occurrence: None)
  Receive Date: 20131119
  Receipt Date: 20131119
  Transmission Date: 20140711
  Serious: Yes (Hospitalization)
  Sender: FDA-Public Use
  Company Number: 2013STPI000446

PATIENT
  Age: 73 Year
  Sex: Male
  Weight: 56.7 kg

DRUGS (1)
  1. MATULANE [Suspect]
     Indication: BRAIN NEOPLASM MALIGNANT
     Route: 048
     Dates: start: 20130820

REACTIONS (1)
  - Cardiac operation [None]
